FAERS Safety Report 23417849 (Version 2)
Quarter: 2025Q1

REPORT INFORMATION
  Report Type: Spontaneous
  Country: US (occurrence: US)
  Receive Date: 20240118
  Receipt Date: 20250115
  Transmission Date: 20250409
  Serious: No
  Sender: SK LIFE SCIENCE
  Company Number: US-SK LIFE SCIENCE, INC-SKPVG-2023-001437

PATIENT

DRUGS (9)
  1. XCOPRI [Suspect]
     Active Substance: CENOBAMATE
     Indication: Seizure
     Route: 048
     Dates: start: 20231009
  2. XCOPRI [Suspect]
     Active Substance: CENOBAMATE
     Indication: Temporal lobe epilepsy
     Dosage: 25 MILLIGRAM, QD
     Route: 048
     Dates: start: 202310
  3. XCOPRI [Suspect]
     Active Substance: CENOBAMATE
     Dosage: 450MG ONCE DAILY BEFORE BED (TWO 200MG TABLETS AND A 50MG TABLET^)
     Route: 048
     Dates: end: 202408
  4. CARBAMAZEPINE [Suspect]
     Active Substance: CARBAMAZEPINE
     Indication: Seizure
     Route: 065
  5. KEPPRA [Concomitant]
     Active Substance: LEVETIRACETAM
     Indication: Product used for unknown indication
     Route: 065
  6. KEPPRA [Concomitant]
     Active Substance: LEVETIRACETAM
     Route: 065
  7. KEPPRA [Concomitant]
     Active Substance: LEVETIRACETAM
     Route: 065
  8. CITALOPRAM [Concomitant]
     Active Substance: CITALOPRAM
     Indication: Anxiety
     Route: 065
  9. OXCARBAZEPINE [Concomitant]
     Active Substance: OXCARBAZEPINE
     Indication: Affective disorder
     Route: 065

REACTIONS (13)
  - Hypoaesthesia [Recovering/Resolving]
  - Impaired work ability [Not Recovered/Not Resolved]
  - Fall [Unknown]
  - Dysstasia [Recovering/Resolving]
  - Limb discomfort [Recovering/Resolving]
  - Product dose omission issue [Not Recovered/Not Resolved]
  - Drug interaction [Recovering/Resolving]
  - Off label use [Unknown]
  - Balance disorder [Recovering/Resolving]
  - Dizziness [Recovering/Resolving]
  - Gait disturbance [Recovering/Resolving]
  - Gait inability [Not Recovered/Not Resolved]
  - Memory impairment [Not Recovered/Not Resolved]

NARRATIVE: CASE EVENT DATE: 20231109
